FAERS Safety Report 25716771 (Version 1)
Quarter: 2025Q3

REPORT INFORMATION
  Report Type: Report from Study
  Country: BR (occurrence: BR)
  Receive Date: 20250822
  Receipt Date: 20250822
  Transmission Date: 20251020
  Serious: Yes (Hospitalization, Other)
  Sender: JOHNSON AND JOHNSON
  Company Number: BR-JNJFOC-20250821309

PATIENT
  Age: 61 Year
  Sex: Male
  Weight: 71 kg

DRUGS (2)
  1. INFLIXIMAB [Suspect]
     Active Substance: INFLIXIMAB
     Indication: Colitis ulcerative
     Route: 041
  2. INFLIXIMAB [Suspect]
     Active Substance: INFLIXIMAB
     Dosage: 6 VIALS, LAST DOSE WAS ON 19-JUL-2023
     Route: 041
     Dates: start: 20230719

REACTIONS (10)
  - Ophthalmic herpes zoster [Not Recovered/Not Resolved]
  - Necrotising retinitis [Unknown]
  - Keratitis [Unknown]
  - Uveitis [Unknown]
  - Cataract [Unknown]
  - Colitis ulcerative [Recovering/Resolving]
  - Decreased immune responsiveness [Unknown]
  - Depression [Unknown]
  - Therapeutic product effect delayed [Unknown]
  - Off label use [Unknown]

NARRATIVE: CASE EVENT DATE: 20230101
